FAERS Safety Report 24182180 (Version 1)
Quarter: 2024Q3

REPORT INFORMATION
  Report Type: Spontaneous
  Country: GB (occurrence: GB)
  Receive Date: 20240807
  Receipt Date: 20240807
  Transmission Date: 20241017
  Serious: Yes (Hospitalization)
  Sender: RANBAXY
  Company Number: GB-SUN PHARMACEUTICAL INDUSTRIES LTD-2024RR-461163

PATIENT
  Age: 41 Year
  Sex: Male

DRUGS (2)
  1. CODEINE [Suspect]
     Active Substance: CODEINE
     Indication: Product used for unknown indication
     Dosage: 30 MILLIGRAM, UNK
     Route: 065
  2. MORPHINE [Suspect]
     Active Substance: MORPHINE
     Indication: Product used for unknown indication
     Dosage: (SHORT-ACTING) 10 MG IN 5ML ORAL SOLUTION 2MG IN 2ML SYRINGE (RECOVERY ONLY)
     Route: 065

REACTIONS (2)
  - Urticaria [Unknown]
  - Pruritus [Recovered/Resolved]
